FAERS Safety Report 4430798-8 (Version None)
Quarter: 2004Q3

REPORT INFORMATION
  Report Type: 
  Country: None (occurrence: None)
  Receive Date: 20040823
  Receipt Date: 20010612
  Transmission Date: 20050211
  Serious: Yes (Life-Threatening)
  Sender: FDA-Public Use
  Company Number: 200111999JP

PATIENT
  Sex: Male
  Weight: 62 kg

DRUGS (29)
  1. RILUTEK [Suspect]
     Indication: AMYOTROPHIC LATERAL SCLEROSIS
     Route: 048
     Dates: start: 20000309, end: 20040408
  2. GASTER [Concomitant]
     Indication: GASTRIC ULCER
     Route: 048
     Dates: start: 20000308, end: 20040408
  3. GASTER [Concomitant]
     Indication: GASTRITIS
     Route: 048
     Dates: start: 20000308, end: 20040408
  4. VITAMEDIN CAPSULE [Concomitant]
     Indication: DYSPEPSIA
     Route: 048
     Dates: start: 20020309, end: 20040408
  5. VITAMEDIN CAPSULE [Concomitant]
     Indication: MUSCLE FATIGUE
     Route: 048
     Dates: start: 20020309, end: 20040408
  6. CYANOCOBALAMIN [Concomitant]
     Indication: NEUROPATHY PERIPHERAL
     Route: 048
     Dates: start: 20020309, end: 20040408
  7. ALTAT [Concomitant]
     Indication: PROPHYLAXIS
     Route: 048
     Dates: start: 20000518, end: 20020521
  8. PURSENNID [Concomitant]
     Indication: CONSTIPATION
     Route: 048
     Dates: start: 20000712
  9. RINDERON-VG [Concomitant]
     Indication: ECZEMA
     Route: 061
     Dates: start: 20000419
  10. FIRSTCIN [Concomitant]
     Indication: PNEUMONIA
     Route: 041
     Dates: start: 20000327, end: 20000401
  11. VITANEURIN [Concomitant]
     Indication: ANOREXIA
     Route: 041
     Dates: start: 20000327, end: 20000401
  12. VITANEURIN [Concomitant]
     Indication: PNEUMONIA
     Route: 041
     Dates: start: 20000327, end: 20000401
  13. VITACIMIN [Concomitant]
     Indication: ANOREXIA
     Route: 041
     Dates: start: 20000327, end: 20000401
  14. VITACIMIN [Concomitant]
     Indication: PNEUMONIA
     Route: 041
     Dates: start: 20000327, end: 20000401
  15. PRIMPERAN INJ [Concomitant]
     Indication: ANOREXIA
     Route: 048
     Dates: start: 20000327, end: 20000403
  16. PRIMPERAN INJ [Concomitant]
     Indication: NAUSEA
     Route: 048
     Dates: start: 20000327, end: 20000403
  17. LOXONIN [Concomitant]
     Indication: INFLAMMATION
     Route: 048
     Dates: start: 20000327, end: 20000403
  18. LOXONIN [Concomitant]
     Indication: PYREXIA
     Route: 048
     Dates: start: 20000327, end: 20000403
  19. ZYMA [Concomitant]
     Indication: ANOREXIA
     Route: 048
     Dates: start: 20000330, end: 20000403
  20. ZYMA [Concomitant]
     Indication: DYSPEPSIA
     Route: 048
     Dates: start: 20000330, end: 20000403
  21. NAPAGELN [Concomitant]
     Indication: MYALGIA
     Route: 061
     Dates: start: 20000406, end: 20000413
  22. CINAL [Concomitant]
     Indication: DYSPEPSIA
     Route: 048
     Dates: start: 20020309, end: 20040408
  23. PAXIL [Concomitant]
     Indication: DEPRESSION
     Route: 048
     Dates: start: 20010417, end: 20010430
  24. DEPAS [Concomitant]
     Indication: DEPRESSION
     Route: 048
     Dates: start: 20010612, end: 20010621
  25. JUVELA                                  /JPN/ [Concomitant]
     Indication: PERIPHERAL VASCULAR DISORDER
     Route: 048
     Dates: start: 20020309, end: 20040408
  26. ANTIINFLAMMATORY/ANTIRHEUMATIC PRODUCTS [Concomitant]
     Indication: BACK PAIN
     Route: 062
     Dates: start: 20020309, end: 20030408
  27. ANTIINFLAMMATORY/ANTIRHEUMATIC PRODUCTS [Concomitant]
     Route: 062
     Dates: start: 20030309, end: 20040308
  28. MAGNESIUM OXIDE [Concomitant]
     Indication: CONSTIPATION
     Route: 048
     Dates: start: 20031028, end: 20040408
  29. MUCOSOLVAN [Concomitant]
     Indication: PERIPHERAL VASCULAR DISORDER
     Route: 048
     Dates: start: 20031229, end: 20040408

REACTIONS (23)
  - ACUTE RESPIRATORY FAILURE [None]
  - ALANINE AMINOTRANSFERASE INCREASED [None]
  - ALCOHOLIC LIVER DISEASE [None]
  - AMYOTROPHIC LATERAL SCLEROSIS [None]
  - ANOREXIA [None]
  - ASPARTATE AMINOTRANSFERASE INCREASED [None]
  - BLOOD CREATINE PHOSPHOKINASE INCREASED [None]
  - BLOOD GLUCOSE INCREASED [None]
  - BRADYKINESIA [None]
  - CONSTIPATION [None]
  - DEPRESSION [None]
  - DISEASE PROGRESSION [None]
  - GASTRIC ULCER [None]
  - GLUCOSE URINE PRESENT [None]
  - HAEMATOCRIT DECREASED [None]
  - HAEMOGLOBIN DECREASED [None]
  - MUSCLE ATROPHY [None]
  - NAUSEA [None]
  - PNEUMONIA [None]
  - PSYCHOLOGICAL FACTOR AFFECTING MEDICAL CONDITION [None]
  - RESPIRATORY FAILURE [None]
  - UPPER RESPIRATORY TRACT INFLAMMATION [None]
  - WHITE BLOOD CELL COUNT INCREASED [None]
